FAERS Safety Report 13842578 (Version 1)
Quarter: 2017Q3

REPORT INFORMATION
  Report Type: Spontaneous
  Country: US (occurrence: US)
  Receive Date: 20170807
  Receipt Date: 20170807
  Transmission Date: 20171127
  Serious: Yes (Hospitalization, Disabling, Other)
  Sender: FDA-Public Use
  Company Number: None

PATIENT
  Age: 64 Year
  Sex: Female
  Weight: 85.05 kg

DRUGS (13)
  1. TRAVATAN Z [Suspect]
     Active Substance: TRAVOPROST
     Indication: PRODUCT USED FOR UNKNOWN INDICATION
     Route: 047
     Dates: start: 20160211, end: 20161215
  2. ZRYTEX [Concomitant]
  3. BIOTIN [Concomitant]
     Active Substance: BIOTIN
  4. WOMEN MULTI [Concomitant]
  5. BYSTOLIC [Concomitant]
     Active Substance: NEBIVOLOL HYDROCHLORIDE
  6. D [Concomitant]
  7. RESATIS [Concomitant]
  8. TRIAM/HCTZ [Concomitant]
  9. TIMOLO [Concomitant]
  10. ATORVASTATIN [Concomitant]
     Active Substance: ATORVASTATIN
  11. COQ10 [Concomitant]
     Active Substance: UBIDECARENONE
  12. C PROBIOTIC [Concomitant]
  13. ZIOPTAN [Suspect]
     Active Substance: TAFLUPROST
     Indication: PRODUCT USED FOR UNKNOWN INDICATION
     Dates: start: 20161216, end: 20170522

REACTIONS (8)
  - Joint swelling [None]
  - Hypertension [None]
  - Discomfort [None]
  - Musculoskeletal stiffness [None]
  - Asthenia [None]
  - Peripheral swelling [None]
  - Swelling [None]
  - Pain [None]

NARRATIVE: CASE EVENT DATE: 20160211
